FAERS Safety Report 7075277-7 (Version None)
Quarter: 2010Q4

REPORT INFORMATION
  Report Type: 
  Country: None (occurrence: None)
  Receive Date: 20101030
  Receipt Date: 20100712
  Transmission Date: 20110411
  Serious: No
  Sender: FDA-Public Use
  Company Number: US-WYE-H16008210

PATIENT
  Age: 69 Year
  Sex: Female
  Weight: 65.83 kg

DRUGS (6)
  1. ALAVERT [Suspect]
     Indication: SEASONAL ALLERGY
     Route: 048
     Dates: start: 20090101, end: 20090101
  2. ALAVERT [Suspect]
     Indication: NASAL DISCOMFORT
  3. ALAVERT [Suspect]
     Indication: EAR PRURITUS
  4. ERGOCALCIFEROL [Concomitant]
  5. ASCORBIC ACID/ERGOCALCIFEROL/FOLIC ACID/NICOTINAMIDE/PANTHENOL/RETINOL [Concomitant]
  6. FISH OIL, HYDROGENATED [Concomitant]

REACTIONS (1)
  - DRUG EFFECT DECREASED [None]
